FAERS Safety Report 7969571-2 (Version None)
Quarter: 2011Q4

REPORT INFORMATION
  Report Type: 
  Country: None (occurrence: None)
  Receive Date: 20111212
  Receipt Date: 20111206
  Transmission Date: 20120403
  Serious: Yes (Death)
  Sender: FDA-Public Use
  Company Number: DE-PFIZER INC-2011298073

PATIENT
  Age: 34 Year

DRUGS (1)
  1. PEGVISOMANT [Suspect]
     Indication: ACROMEGALY
     Dosage: UNK

REACTIONS (1)
  - DEATH [None]
